FAERS Safety Report 6062860-0 (Version None)
Quarter: 2009Q1

REPORT INFORMATION
  Report Type: 
  Country: None (occurrence: None)
  Receive Date: 20090203
  Receipt Date: 20090202
  Transmission Date: 20090719
  Serious: Yes (Other)
  Sender: FDA-Public Use
  Company Number: US-BAYER-200813343BCC

PATIENT
  Age: 50 Year
  Sex: Female
  Weight: 53 kg

DRUGS (3)
  1. ALEVE [Suspect]
     Indication: BACK PAIN
     Dosage: AS USED: 440 MG  UNIT DOSE: 220 MG
     Route: 048
     Dates: start: 20080728, end: 20080728
  2. ALEVE [Suspect]
     Dosage: AS USED: 440 MG  UNIT DOSE: 220 MG
     Route: 048
     Dates: start: 20080808, end: 20080808
  3. LEVOTHYROXINE [Concomitant]

REACTIONS (4)
  - ABDOMINAL DISTENSION [None]
  - COELIAC DISEASE [None]
  - DYSPEPSIA [None]
  - NAUSEA [None]
